FAERS Safety Report 24291352 (Version 1)
Quarter: 2024Q3

REPORT INFORMATION
  Report Type: Spontaneous
  Country: US (occurrence: None)
  Receive Date: 20240906
  Receipt Date: 20240906
  Transmission Date: 20241017
  Serious: No
  Sender: DOMPE FARMACEUTICI
  Company Number: US-FARMAPROD-202308-2473

PATIENT
  Sex: Female

DRUGS (10)
  1. OXERVATE [Suspect]
     Active Substance: CENEGERMIN-BKBJ
     Indication: Neurotrophic keratopathy
     Route: 047
     Dates: start: 20230731
  2. ZINC [Concomitant]
     Active Substance: ZINC
     Dosage: 50(220)MG.
  3. HERBALS\TURMERIC [Concomitant]
     Active Substance: HERBALS\TURMERIC
  4. ALPHA LIPOIC ACID [Concomitant]
     Active Substance: .ALPHA.-LIPOIC ACID
  5. OCUVITE BLUE LIGHT [Concomitant]
  6. FISH OIL [Concomitant]
     Active Substance: FISH OIL
     Dosage: 100-160 MG
  7. VITAMIN D2 [Concomitant]
     Active Substance: ERGOCALCIFEROL
  8. FLUORESCEIN/BENOXINATE [Concomitant]
  9. PREMARIN [Concomitant]
     Active Substance: ESTROGENS, CONJUGATED
  10. NOVOLIN NOS [Concomitant]
     Active Substance: INSULIN HUMAN
     Dosage: 70-30 FLEXPEN

REACTIONS (1)
  - Eye pain [Not Recovered/Not Resolved]
